FAERS Safety Report 23315671 (Version 1)
Quarter: 2023Q4

REPORT INFORMATION
  Report Type: Report from Study
  Country: US (occurrence: US)
  Receive Date: 20231219
  Receipt Date: 20231219
  Transmission Date: 20240110
  Serious: Yes (Death)
  Sender: FDA-Public Use
  Company Number: US-TAIHOP-2023-010852

PATIENT
  Age: 58 Year
  Sex: Female

DRUGS (1)
  1. LONSURF [Suspect]
     Active Substance: TIPIRACIL HYDROCHLORIDE\TRIFLURIDINE
     Indication: Colon cancer
     Dosage: CYCLE UNKNOWN?STRENGTH 15 AND 20 MG
     Route: 048
     Dates: start: 202311

REACTIONS (1)
  - Death [Fatal]

NARRATIVE: CASE EVENT DATE: 20231211
